FAERS Safety Report 24694247 (Version 1)
Quarter: 2024Q4

REPORT INFORMATION
  Report Type: Spontaneous
  Country: US (occurrence: US)
  Receive Date: 20241204
  Receipt Date: 20241204
  Transmission Date: 20250114
  Serious: No
  Sender: PACIRA
  Company Number: US-ORG100016242-2024000490

PATIENT
  Age: 74 Year
  Sex: Female
  Weight: 64.41 kg

DRUGS (1)
  1. ZILRETTA [Suspect]
     Active Substance: TRIAMCINOLONE ACETONIDE
     Indication: Arthralgia
     Dosage: NOT PROVIDED
     Route: 050
     Dates: start: 20240506, end: 20240506

REACTIONS (2)
  - Therapeutic response shortened [Unknown]
  - Gait disturbance [Unknown]
